FAERS Safety Report 11647880 (Version 1)
Quarter: 2015Q4

REPORT INFORMATION
  Report Type: Report from Study
  Country: FR (occurrence: FR)
  Receive Date: 20151021
  Receipt Date: 20151021
  Transmission Date: 20160304
  Serious: Yes (Death, Other)
  Sender: FDA-Public Use
  Company Number: PHHO2015FR016226

PATIENT
  Age: 71 Year
  Sex: Male
  Weight: 96 kg

DRUGS (6)
  1. VFEND [Concomitant]
     Active Substance: VORICONAZOLE
     Indication: PNEUMONIA NECROTISING
     Dosage: 200 MG,
     Route: 042
     Dates: start: 20150822, end: 20150823
  2. AUGMENTIN [Concomitant]
     Active Substance: AMOXICILLIN\CLAVULANATE POTASSIUM
     Indication: PNEUMONIA NECROTISING
     Dosage: 1 G, Q8H
     Route: 048
     Dates: start: 20150813, end: 20150818
  3. AMIKLIN [Concomitant]
     Active Substance: AMIKACIN SULFATE
     Indication: PNEUMONIA
     Dosage: 500 MG,
     Route: 042
     Dates: start: 20150823, end: 20150824
  4. TAZOCILLINE [Concomitant]
     Active Substance: PIPERACILLIN SODIUM\TAZOBACTAM SODIUM
     Indication: PNEUMONIA NECROTISING
     Dosage: 12 G, QD
     Route: 042
     Dates: start: 20150820, end: 20150824
  5. ELTROMBOPAG [Suspect]
     Active Substance: ELTROMBOPAG
     Indication: MYELODYSPLASTIC SYNDROME
     Dosage: 200 MG, QD
     Route: 048
     Dates: start: 20150625, end: 20150722
  6. AUGMENTIN [Concomitant]
     Active Substance: AMOXICILLIN\CLAVULANATE POTASSIUM
     Indication: CELLULITIS

REACTIONS (1)
  - Pneumonia necrotising [Fatal]

NARRATIVE: CASE EVENT DATE: 20150813
